FAERS Safety Report 5528605-5 (Version None)
Quarter: 2007Q4

REPORT INFORMATION
  Report Type: 
  Country: None (occurrence: None)
  Receive Date: 20071121
  Receipt Date: 20071106
  Transmission Date: 20080405
  Serious: Yes (Other)
  Sender: FDA-Public Use
  Company Number: B0495848A

PATIENT
  Age: 46 Year
  Sex: Male

DRUGS (7)
  1. FOSAMPRENAVIR (FORMULATION UNKNOWN) (GENERIC) (FOSAMPRENAVIR) [Suspect]
     Indication: HIV INFECTION
  2. DIDANOSINE [Suspect]
     Indication: HIV INFECTION
  3. RITONAVIR (FORMULATION UNKNOWN) (RITONAVIR) [Suspect]
     Indication: HIV INFECTION
  4. TENOFOVIR (FORMULATION UNKNOWN) (TENOFOVIR) [Suspect]
     Indication: HIV INFECTION
  5. INVESTIGAT.DRUG UNSPEC. (FORMULATION UNKNOWN) (INVESTIGAT.DRUG UNSPEC. [Suspect]
     Indication: HIV INFECTION
  6. PLACEBO (FORMULATION UNKNOWN) (PLACEBO) [Suspect]
     Indication: HIV INFECTION
  7. COTRIM [Concomitant]

REACTIONS (9)
  - IMMUNE RECONSTITUTION SYNDROME [None]
  - IRIDOCYCLITIS [None]
  - KAPOSI'S SARCOMA [None]
  - LYMPHADENOPATHY [None]
  - PANCYTOPENIA [None]
  - PYREXIA [None]
  - RASH MACULO-PAPULAR [None]
  - SKIN LESION [None]
  - VISCERAL LEISHMANIASIS [None]
